FAERS Safety Report 15578495 (Version 1)
Quarter: 2018Q4

REPORT INFORMATION
  Report Type: Spontaneous
  Country: US (occurrence: US)
  Receive Date: 20181102
  Receipt Date: 20181102
  Transmission Date: 20190205
  Serious: No
  Sender: FDA-Public Use
  Company Number: US-LUPIN PHARMACEUTICALS INC.-2018-03408

PATIENT
  Age: 44 Year
  Sex: Male
  Weight: 84.81 kg

DRUGS (1)
  1. CEFTRIAXONE FOR INJECTION USP, 500 MG [Suspect]
     Active Substance: CEFTRIAXONE
     Indication: PRODUCT USED FOR UNKNOWN INDICATION
     Dosage: UNK UNK, SINGLE
     Route: 030
     Dates: start: 20180420, end: 20180420

REACTIONS (2)
  - Expired product administered [Unknown]
  - No adverse event [Unknown]

NARRATIVE: CASE EVENT DATE: 20180420
